FAERS Safety Report 21084746 (Version 3)
Quarter: 2023Q1

REPORT INFORMATION
  Report Type: Report from Study
  Country: US (occurrence: US)
  Receive Date: 20220714
  Receipt Date: 20230109
  Transmission Date: 20230418
  Serious: Yes (Other)
  Sender: FDA-Public Use
  Company Number: US-ALLERGAN-2222109US

PATIENT
  Sex: Female
  Weight: 99.79 kg

DRUGS (3)
  1. ATOGEPANT [Suspect]
     Active Substance: ATOGEPANT
     Indication: Migraine
     Dosage: 60 MG, QD
     Route: 048
     Dates: start: 20220525
  2. UBROGEPANT [Suspect]
     Active Substance: UBROGEPANT
     Indication: Migraine
     Dosage: 100 MG, PRN, AS NEEDED
     Route: 048
     Dates: start: 20220525
  3. UBROGEPANT [Suspect]
     Active Substance: UBROGEPANT
     Indication: Headache

REACTIONS (7)
  - Seizure [Unknown]
  - Dizziness [Unknown]
  - Photophobia [Unknown]
  - Phonophobia [Unknown]
  - Therapy interrupted [Unknown]
  - Headache [Not Recovered/Not Resolved]
  - Nausea [Unknown]

NARRATIVE: CASE EVENT DATE: 20220101
